FAERS Safety Report 5156939-5 (Version None)
Quarter: 2006Q4

REPORT INFORMATION
  Report Type: 
  Country: None (occurrence: None)
  Receive Date: 20061124
  Receipt Date: 20050519
  Transmission Date: 20070319
  Serious: Yes (Death, Life-Threatening, Hospitalization)
  Sender: FDA-Public Use
  Company Number: DE-ROCHE-405361

PATIENT
  Age: 48 Year
  Sex: Male
  Weight: 79 kg

DRUGS (3)
  1. PEG-INTERFERON A-2A (RO 25-8310) [Suspect]
     Route: 058
     Dates: start: 20041129, end: 20050502
  2. RIBAVIRIN [Suspect]
     Route: 048
     Dates: start: 20041129, end: 20050502
  3. DECORTIN [Concomitant]
     Route: 048
     Dates: start: 20040615

REACTIONS (4)
  - AUTOIMMUNE THROMBOCYTOPENIA [None]
  - ILEUS [None]
  - MUCOSAL HAEMORRHAGE [None]
  - PLATELET COUNT DECREASED [None]
